FAERS Safety Report 17071448 (Version 1)
Quarter: 2019Q4

REPORT INFORMATION
  Report Type: Spontaneous
  Country: US (occurrence: US)
  Receive Date: 20191125
  Receipt Date: 20191125
  Transmission Date: 20200122
  Serious: No
  Sender: FDA-Public Use
  Company Number: US-ROCHE-2295820

PATIENT
  Sex: Female
  Weight: 68.1 kg

DRUGS (1)
  1. OSELTAMIVIR [Suspect]
     Active Substance: OSELTAMIVIR
     Indication: INFLUENZA
     Route: 065
     Dates: start: 20190311, end: 20190315

REACTIONS (1)
  - Dizziness [Not Recovered/Not Resolved]
